FAERS Safety Report 24732609 (Version 1)
Quarter: 2024Q4

REPORT INFORMATION
  Report Type: Spontaneous
  Country: CN (occurrence: CN)
  Receive Date: 20241213
  Receipt Date: 20241213
  Transmission Date: 20250115
  Serious: Yes (Other)
  Sender: MERCK
  Company Number: CN-009507513-2412CHN003718

PATIENT
  Sex: Female

DRUGS (2)
  1. JANUVIA [Suspect]
     Active Substance: SITAGLIPTIN PHOSPHATE
     Dosage: SMALLER-PACK VERSION, SPECIFIC SPECIFICATIONS/STRENGTH NOT PROVIDED
     Route: 048
     Dates: start: 2022
  2. JANUVIA [Suspect]
     Active Substance: SITAGLIPTIN PHOSPHATE
     Dosage: 28-PILL PACK
     Route: 048
     Dates: start: 2024

REACTIONS (3)
  - Diabetes mellitus inadequate control [Unknown]
  - Drug effect less than expected [Unknown]
  - Blood glucose abnormal [Unknown]

NARRATIVE: CASE EVENT DATE: 20240101
